FAERS Safety Report 22376781 (Version 1)
Quarter: 2023Q2

REPORT INFORMATION
  Report Type: Spontaneous
  Country: US (occurrence: US)
  Receive Date: 20230528
  Receipt Date: 20230528
  Transmission Date: 20230722
  Serious: Yes (Death)
  Sender: FDA-Public Use
  Company Number: US-ABBVIE-5182514

PATIENT
  Sex: Male

DRUGS (2)
  1. IMBRUVICA [Suspect]
     Active Substance: IBRUTINIB
     Indication: Product used for unknown indication
     Route: 048
  2. BALVERSA [Concomitant]
     Active Substance: ERDAFITINIB
     Indication: Product used for unknown indication
     Dosage: FORM STRENGTH: 4 MILLIGRAM

REACTIONS (1)
  - Death [Fatal]
